FAERS Safety Report 6608456-0 (Version None)
Quarter: 2010Q1

REPORT INFORMATION
  Report Type: 
  Country: None (occurrence: None)
  Receive Date: 20100301
  Receipt Date: 20100218
  Transmission Date: 20100710
  Serious: Yes (Hospitalization)
  Sender: FDA-Public Use
  Company Number: US-AMGEN-KDL393969

PATIENT
  Sex: Female
  Weight: 118 kg

DRUGS (12)
  1. PROCRIT [Suspect]
     Indication: ANAEMIA
     Dates: start: 20050101, end: 20051201
  2. RIBAVIRIN [Concomitant]
  3. METFORMIN HYDROCHLORIDE [Concomitant]
  4. UNSPECIFIED MEDICATION [Concomitant]
  5. ACYCLOVIR [Concomitant]
  6. LITHIUM [Concomitant]
  7. LEXAPRO [Concomitant]
  8. ATARAX [Concomitant]
  9. FLONASE [Concomitant]
  10. COMBIVENT [Concomitant]
  11. PRO-AIR (PARKE DAVIS) [Concomitant]
  12. PREDNISONE [Concomitant]

REACTIONS (3)
  - CROHN'S DISEASE [None]
  - POSTOPERATIVE WOUND INFECTION [None]
  - WEIGHT INCREASED [None]
